FAERS Safety Report 18541777 (Version 1)
Quarter: 2020Q4

REPORT INFORMATION
  Report Type: Other
  Country: CA (occurrence: CA)
  Receive Date: 20201124
  Receipt Date: 20201124
  Transmission Date: 20210114
  Serious: Yes (Other)
  Sender: FDA-Public Use
  Company Number: CA-CELLTRION INC.-2020CA032022

PATIENT

DRUGS (7)
  1. ACETAMINOPHEN. [Concomitant]
     Active Substance: ACETAMINOPHEN
     Indication: PREMEDICATION
     Dosage: 650 MG
     Route: 048
  2. PERINDOPRIL [Concomitant]
     Active Substance: PERINDOPRIL
  3. ROSUVASTATIN. [Concomitant]
     Active Substance: ROSUVASTATIN
  4. DIPHENHYDRAMINE. [Concomitant]
     Active Substance: DIPHENHYDRAMINE
     Indication: PREMEDICATION
     Dosage: 50 MG
     Route: 048
  5. AZATHIOPRINE. [Concomitant]
     Active Substance: AZATHIOPRINE
  6. RITUXIMAB (UNKNOWN) [Suspect]
     Active Substance: RITUXIMAB
     Indication: IMMUNE THROMBOCYTOPENIA
     Dosage: 850 MG, 1 EVERY 1 WEEKS
     Route: 042
  7. METOPROLOL. [Concomitant]
     Active Substance: METOPROLOL

REACTIONS (7)
  - Heart rate decreased [Recovered/Resolved]
  - Blood pressure systolic abnormal [Recovered/Resolved]
  - Intentional product use issue [Recovered/Resolved]
  - Off label use [Recovered/Resolved]
  - Blood pressure fluctuation [Recovered/Resolved]
  - Body temperature decreased [Recovered/Resolved]
  - Platelet count decreased [Recovered/Resolved]
